FAERS Safety Report 7147660-2 (Version None)
Quarter: 2010Q4

REPORT INFORMATION
  Report Type: 
  Country: None (occurrence: None)
  Receive Date: 20101209
  Receipt Date: 20101130
  Transmission Date: 20110411
  Serious: No
  Sender: FDA-Public Use
  Company Number: US-BIOGENIDEC-2010BI042370

PATIENT
  Age: 39 Year
  Sex: Female

DRUGS (1)
  1. TYSABRI [Suspect]
     Indication: MULTIPLE SCLEROSIS
     Route: 042
     Dates: start: 20061003

REACTIONS (4)
  - CD4 LYMPHOCYTES INCREASED [None]
  - DIZZINESS [None]
  - T-LYMPHOCYTE COUNT INCREASED [None]
  - VOMITING [None]
